FAERS Safety Report 5764086-4 (Version None)
Quarter: 2008Q2

REPORT INFORMATION
  Report Type: 
  Country: None (occurrence: None)
  Receive Date: 20080609
  Receipt Date: 20080404
  Transmission Date: 20081010
  Serious: No
  Sender: FDA-Public Use
  Company Number: 002#2#2008-00219

PATIENT
  Age: 44 Year
  Sex: Female
  Weight: 56.246 kg

DRUGS (6)
  1. NEUPRO [Suspect]
     Indication: PARKINSON'S DISEASE
     Dosage: SEE IMAGE
     Route: 062
     Dates: start: 20070701, end: 20070701
  2. NEUPRO [Suspect]
     Indication: PARKINSON'S DISEASE
     Dosage: SEE IMAGE
     Route: 062
     Dates: start: 20070701, end: 20070701
  3. NEUPRO [Suspect]
     Indication: PARKINSON'S DISEASE
     Dosage: SEE IMAGE
     Route: 062
     Dates: start: 20070701, end: 20070701
  4. NEUPRO [Suspect]
     Indication: PARKINSON'S DISEASE
     Dosage: SEE IMAGE
     Route: 062
     Dates: start: 20070701
  5. AZILECT [Concomitant]
  6. SYNTHROID [Concomitant]

REACTIONS (5)
  - APPLICATION SITE PRURITUS [None]
  - APPLICATION SITE REACTION [None]
  - DIZZINESS [None]
  - INTENTIONAL OVERDOSE [None]
  - NAUSEA [None]
